FAERS Safety Report 10795204 (Version 1)
Quarter: 2015Q1

REPORT INFORMATION
  Report Type: Spontaneous
  Country: US (occurrence: US)
  Receive Date: 20150214
  Receipt Date: 20150214
  Transmission Date: 20150721
  Serious: No
  Sender: FDA-Public Use
  Company Number: US-GLAXOSMITHKLINE-A1057594A

PATIENT

DRUGS (3)
  1. NICODERM CQ [Suspect]
     Active Substance: NICOTINE
     Indication: EX-TOBACCO USER
     Route: 062
     Dates: start: 20140101, end: 20140102
  2. EQUATE NICOTINE [Suspect]
     Active Substance: NICOTINE
     Route: 062
  3. NICODERM CQ [Suspect]
     Active Substance: NICOTINE
     Dates: start: 20140101, end: 20140102

REACTIONS (5)
  - Application site pruritus [Recovered/Resolved]
  - Application site swelling [Unknown]
  - Application site erythema [Recovered/Resolved]
  - Palpitations [Unknown]
  - Application site reaction [Unknown]

NARRATIVE: CASE EVENT DATE: 20140101
